FAERS Safety Report 16274872 (Version 2)
Quarter: 2019Q2

REPORT INFORMATION
  Report Type: Spontaneous
  Country: FR (occurrence: FR)
  Receive Date: 20190506
  Receipt Date: 20190612
  Transmission Date: 20190711
  Serious: Yes (Hospitalization)
  Sender: FDA-Public Use
  Company Number: FR-AXELLIA-002442

PATIENT
  Age: 94 Year
  Sex: Male
  Weight: 62.3 kg

DRUGS (15)
  1. ORBENINE [Suspect]
     Active Substance: CLOXACILLIN SODIUM
     Indication: INFECTION
     Dosage: ALSO RECEIVED ON 19-MAR-2019.
     Route: 042
     Dates: start: 20190304, end: 20190319
  2. RANITIDINE. [Suspect]
     Active Substance: RANITIDINE
     Indication: INFECTION
     Dosage: 150 MG, QD
     Route: 048
     Dates: start: 20190306, end: 20190322
  3. ALLOPURINOL. [Concomitant]
     Active Substance: ALLOPURINOL
  4. DAPTOMYCIN. [Suspect]
     Active Substance: DAPTOMYCIN
     Indication: INFECTION
     Dosage: POWDER FOR SOLUTION FOR INFUSION
     Dates: start: 20190307, end: 20190321
  5. VANCOMYCIN SANDOZ [Suspect]
     Active Substance: VANCOMYCIN
     Indication: INFECTION
     Dosage: 2 G, QD
     Route: 042
     Dates: start: 20190304, end: 20190308
  6. KARDEGIC [Concomitant]
     Active Substance: ASPIRIN DL-LYSINE
  7. GENTAMICINE PANPHARMA [Suspect]
     Active Substance: GENTAMICIN
     Indication: INFECTION
     Route: 042
     Dates: start: 20190304, end: 20190308
  8. CANDESARTAN CILEXETIL. [Concomitant]
     Active Substance: CANDESARTAN CILEXETIL
  9. ALFUZOSIN [Concomitant]
     Active Substance: ALFUZOSIN
  10. PARACETAMOL [Concomitant]
     Active Substance: ACETAMINOPHEN
  11. FINASTERIDE. [Concomitant]
     Active Substance: FINASTERIDE
  12. RIFAMPICIN [Suspect]
     Active Substance: RIFAMPIN
     Indication: INFECTION
     Dosage: 1200 MG, QD
     Route: 042
     Dates: start: 20190307, end: 20190313
  13. LEVOTHYROX [Concomitant]
     Active Substance: LEVOTHYROXINE
  14. FUROSEMIDE. [Concomitant]
     Active Substance: FUROSEMIDE
  15. DIFFU K [Concomitant]
     Active Substance: POTASSIUM CHLORIDE

REACTIONS (3)
  - Thrombocytopenia [Not Recovered/Not Resolved]
  - Purpura [Not Recovered/Not Resolved]
  - Jaundice [Not Recovered/Not Resolved]

NARRATIVE: CASE EVENT DATE: 20190307
